FAERS Safety Report 4823278-9 (Version None)
Quarter: 2005Q4

REPORT INFORMATION
  Report Type: 
  Country: None (occurrence: None)
  Receive Date: 20051107
  Receipt Date: 20051026
  Transmission Date: 20060501
  Serious: Yes (Death, Life-Threatening)
  Sender: FDA-Public Use
  Company Number: 2005147620

PATIENT
  Age: 1 Day
  Sex: Female
  Weight: 1.5 kg

DRUGS (5)
  1. FLUCONAZOLE [Suspect]
     Indication: BRONCHITIS
     Dosage: DAILY, ORAL
     Route: 064
     Dates: start: 20050207, end: 20050214
  2. FLUCONAZOLE [Suspect]
     Indication: RHINITIS
     Dosage: DAILY, ORAL
     Route: 064
     Dates: start: 20050207, end: 20050214
  3. CELESTONE [Suspect]
     Indication: ILL-DEFINED DISORDER
     Dosage: QID, ORAL
     Route: 064
     Dates: start: 20050207, end: 20050214
  4. DETRINOX (CETRIMONIUM BROMIDE, NAPHAZOLINE NITRATE, PHENYLEPHRINE HYDR [Suspect]
     Indication: ILL-DEFINED DISORDER
     Dosage: QID
     Route: 064
     Dates: start: 20050207, end: 20050214
  5. ANTARENE (IBUPROFEN) [Suspect]
     Indication: ILL-DEFINED DISORDER
     Dosage: QID, ORAL
     Route: 064
     Dates: start: 20050207, end: 20050214

REACTIONS (15)
  - ANAL ATRESIA [None]
  - ANOMALY OF EXTERNAL EAR CONGENITAL [None]
  - CEREBRAL ATROPHY CONGENITAL [None]
  - CONGENITAL CEREBRAL CYST [None]
  - CONGENITAL CYSTIC LUNG [None]
  - CONGENITAL INTESTINAL MALFORMATION [None]
  - CONGENITAL PYELOCALIECTASIS [None]
  - DIVERTICULUM [None]
  - DRUG EXPOSURE DURING PREGNANCY [None]
  - EYELID PTOSIS CONGENITAL [None]
  - FACIAL DYSMORPHISM [None]
  - INTESTINAL ATRESIA [None]
  - INTESTINAL DILATATION [None]
  - POLYHYDRAMNIOS [None]
  - ULTRASOUND ANTENATAL SCREEN ABNORMAL [None]
